FAERS Safety Report 5583033-1 (Version None)
Quarter: 2008Q1

REPORT INFORMATION
  Report Type: 
  Country: None (occurrence: None)
  Receive Date: 20080107
  Receipt Date: 20080102
  Transmission Date: 20080703
  Serious: Yes (Other)
  Sender: FDA-Public Use
  Company Number: A0697355A

PATIENT
  Age: 63 Year
  Sex: Male

DRUGS (5)
  1. ALKERAN [Suspect]
     Indication: MULTIPLE MYELOMA
     Dosage: 24MG UNKNOWN
     Dates: start: 20020601
  2. REVLIMID [Suspect]
     Indication: MULTIPLE MYELOMA
     Route: 048
     Dates: start: 20061003, end: 20070319
  3. PREDNISONE TAB [Suspect]
     Indication: MULTIPLE MYELOMA
  4. DEXAMETHASONE TAB [Suspect]
     Indication: MULTIPLE MYELOMA
  5. ARANESP [Concomitant]
     Indication: DRUG USE FOR UNKNOWN INDICATION
     Dosage: 200MG CYCLIC

REACTIONS (7)
  - DISEASE PROGRESSION [None]
  - DYSPNOEA [None]
  - MEGAKARYOCYTES ABNORMAL [None]
  - MYELODYSPLASTIC SYNDROME [None]
  - OEDEMA PERIPHERAL [None]
  - PANCYTOPENIA [None]
  - PLASMA CELLS INCREASED [None]
